FAERS Safety Report 20644217 (Version 1)
Quarter: 2022Q1

REPORT INFORMATION
  Report Type: Other
  Country: US (occurrence: None)
  Receive Date: 20220328
  Receipt Date: 20220328
  Transmission Date: 20220423
  Serious: Yes (Hospitalization)
  Sender: FDA-Public Use
  Company Number: US-ROCHE-2867022

PATIENT
  Age: 68 Year
  Sex: Female
  Weight: 77.180 kg

DRUGS (9)
  1. OCREVUS [Suspect]
     Active Substance: OCRELIZUMAB
     Indication: Relapsing multiple sclerosis
     Dosage: ONGOING YES?DATE OF TREATMENT; 06/DEC/2018, 20/DEC/2018, 17/JUN/2019, 10/DEC/2019, 08/JUN/2020, 07/D
     Route: 042
     Dates: start: 20181206
  2. MONTELUKAST SODIUM [Concomitant]
     Active Substance: MONTELUKAST SODIUM
     Indication: Asthma
     Route: 048
  3. PRIMIDONE [Concomitant]
     Active Substance: PRIMIDONE
     Dosage: ONGOING YES?2 TABS 3 TIMES A DAY
     Route: 048
     Dates: start: 201412
  4. VASTATIN [ATORVASTATIN CALCIUM TRIHYDRATE] [Concomitant]
     Indication: Blood cholesterol increased
     Dosage: ONGOING YES
     Route: 048
  5. GABAPENTIN [Concomitant]
     Active Substance: GABAPENTIN
     Indication: Neuropathy peripheral
     Route: 048
  6. BACLOFEN [Concomitant]
     Active Substance: BACLOFEN
     Indication: Muscle relaxant therapy
     Route: 048
  7. OMEPRAZOLE [Concomitant]
     Active Substance: OMEPRAZOLE
     Indication: Gastrooesophageal reflux disease
     Route: 048
  8. ZOCOR [Concomitant]
     Active Substance: SIMVASTATIN
     Route: 048
  9. WIXELA INHUB [Concomitant]
     Active Substance: FLUTICASONE PROPIONATE\SALMETEROL XINAFOATE
     Indication: Asthma
     Route: 055

REACTIONS (6)
  - Pain [Recovered/Resolved]
  - Gait disturbance [Recovered/Resolved]
  - Fatigue [Recovered/Resolved]
  - Gastrointestinal viral infection [Recovered/Resolved]
  - Diarrhoea [Recovered/Resolved]
  - Dehydration [Recovered/Resolved]

NARRATIVE: CASE EVENT DATE: 20210301
